FAERS Safety Report 25293274 (Version 2)
Quarter: 2025Q2

REPORT INFORMATION
  Report Type: Spontaneous
  Country: US (occurrence: US)
  Receive Date: 20250510
  Receipt Date: 20250513
  Transmission Date: 20250717
  Serious: No
  Sender: SANOFI AVENTIS
  Company Number: US-SA-2025SA094157

PATIENT
  Age: 67 Year
  Sex: Male

DRUGS (3)
  1. PRIFTIN [Suspect]
     Active Substance: RIFAPENTINE
     Indication: Latent tuberculosis
     Dosage: 6 DF, QW
     Route: 048
  2. PRIFTIN [Suspect]
     Active Substance: RIFAPENTINE
     Indication: Disseminated tuberculosis
     Dosage: 1 DF, QW
     Route: 048
  3. PRIFTIN [Suspect]
     Active Substance: RIFAPENTINE
     Indication: Pulmonary tuberculosis

REACTIONS (1)
  - Off label use [Unknown]
